FAERS Safety Report 8848601 (Version 1)
Quarter: 2012Q4

REPORT INFORMATION
  Report Type: 
  Country: FR (occurrence: FR)
  Receive Date: 20121018
  Receipt Date: 20121018
  Transmission Date: 20130627
  Serious: Yes (Hospitalization)
  Sender: FDA-Public Use
  Company Number: FR-ASTRAZENECA-2012SE78869

PATIENT
  Age: 28254 Day
  Sex: Male

DRUGS (16)
  1. INEXIUM [Suspect]
     Indication: PRODUCT USED FOR UNKNOWN INDICATION
     Route: 048
     Dates: end: 20120905
  2. INEXIUM [Suspect]
     Indication: PRODUCT USED FOR UNKNOWN INDICATION
     Route: 048
     Dates: start: 20121002
  3. TARDYFERON [Suspect]
     Indication: ANAEMIA
     Route: 048
     Dates: end: 20120905
  4. AMLOR [Suspect]
     Indication: HYPERTENSION
     Route: 048
     Dates: start: 201206
  5. ATARAX [Suspect]
     Indication: PRODUCT USED FOR UNKNOWN INDICATION
     Route: 048
     Dates: start: 201206
  6. EUPRESSYL [Suspect]
     Indication: HYPERTENSION
     Route: 048
     Dates: start: 201206, end: 20120905
  7. EUPRESSYL [Suspect]
     Indication: HYPERTENSION
     Route: 048
     Dates: start: 20120905
  8. TIAPRIDAL [Concomitant]
  9. XYZALL [Concomitant]
  10. LODOZ [Concomitant]
  11. DAFALGAN [Concomitant]
  12. DIAMICRON [Concomitant]
  13. ZOCOR [Concomitant]
  14. KARDEGIC [Concomitant]
  15. PLAVIX [Concomitant]
  16. HYPERIUM [Concomitant]

REACTIONS (1)
  - Pancreatitis necrotising [Recovering/Resolving]
